FAERS Safety Report 6023957-4 (Version None)
Quarter: 2008Q4

REPORT INFORMATION
  Report Type: 
  Country: None (occurrence: None)
  Receive Date: 20081230
  Receipt Date: 20081217
  Transmission Date: 20090506
  Serious: Yes (Hospitalization)
  Sender: FDA-Public Use
  Company Number: JP-ABBOTT-08P-087-0495076-00

PATIENT
  Age: 79 Year
  Sex: Male

DRUGS (17)
  1. LEUPROLIDE ACETATE [Suspect]
     Indication: PROSTATE CANCER STAGE III
     Route: 058
     Dates: start: 20080118, end: 20080118
  2. LEUPROLIDE ACETATE [Suspect]
     Dates: start: 20071012, end: 20071012
  3. LEUPROLIDE ACETATE [Suspect]
     Dates: start: 20070720, end: 20070720
  4. LEUPROLIDE ACETATE [Suspect]
     Dates: start: 20070427, end: 20070427
  5. LEUPROLIDE ACETATE [Suspect]
     Dates: start: 20070202, end: 20070202
  6. LEUPROLIDE ACETATE [Suspect]
     Dates: start: 20061110, end: 20061110
  7. LEUPROLIDE ACETATE [Suspect]
     Dates: start: 20060818, end: 20060818
  8. LEUPROLIDE ACETATE [Suspect]
     Dates: start: 20060526, end: 20060526
  9. LEUPROLIDE ACETATE [Suspect]
     Dates: start: 20060303, end: 20060303
  10. LEUPROLIDE ACETATE [Suspect]
     Dates: start: 20060203, end: 20060203
  11. LEUPROLIDE ACETATE [Suspect]
     Dates: start: 20060106, end: 20060106
  12. CASODEX [Concomitant]
     Indication: PROSTATE CANCER STAGE III
     Route: 048
  13. CARBAZOCHROME SODIUM SULFONATE [Concomitant]
     Indication: DRUG USE FOR UNKNOWN INDICATION
     Dates: start: 20071004, end: 20071010
  14. TRANEXAMIC ACID [Concomitant]
     Indication: DRUG USE FOR UNKNOWN INDICATION
     Dates: start: 20071004, end: 20071010
  15. TOSUFLOXACIN TOSILATE [Concomitant]
     Indication: DRUG USE FOR UNKNOWN INDICATION
     Dates: start: 20071004, end: 20071010
  16. SENNOSIDE [Concomitant]
     Indication: DRUG USE FOR UNKNOWN INDICATION
     Dates: start: 20071001
  17. CEFOTIAM DIHYDROCHLORIDE [Concomitant]
     Indication: DRUG USE FOR UNKNOWN INDICATION
     Dates: start: 20071002, end: 20071003

REACTIONS (2)
  - BLADDER CANCER [None]
  - INJECTION SITE INDURATION [None]
